FAERS Safety Report 5727953-3 (Version None)
Quarter: 2008Q2

REPORT INFORMATION
  Report Type: 
  Country: None (occurrence: None)
  Receive Date: 20080430
  Receipt Date: 20080224
  Transmission Date: 20081010
  Serious: No
  Sender: FDA-Public Use
  Company Number: 2008PV034362

PATIENT
  Age: 57 Year
  Sex: Female
  Weight: 153.7694 kg

DRUGS (5)
  1. SYMLIN [Suspect]
     Indication: TYPE 2 DIABETES MELLITUS
     Dosage: 120 MCG;BID;SC
     Route: 058
     Dates: start: 20080201
  2. SYMLIN [Suspect]
     Indication: TYPE 2 DIABETES MELLITUS
     Dosage: 60 MCG;BID;SC
     Route: 058
     Dates: start: 20050101, end: 20080201
  3. LANTUS [Concomitant]
  4. NOVOLOG [Concomitant]
  5. AVANDIA [Concomitant]

REACTIONS (1)
  - BLOOD GLUCOSE INCREASED [None]
